FAERS Safety Report 9990968 (Version 1)
Quarter: 2014Q1

REPORT INFORMATION
  Report Type: Spontaneous
  Country: US (occurrence: US)
  Receive Date: 20140310
  Receipt Date: 20140310
  Transmission Date: 20141002
  Serious: No
  Sender: FDA-Public Use
  Company Number: US-ABBVIE-13P-163-1132769-00

PATIENT
  Age: 40 Year
  Sex: Male
  Weight: 85.35 kg

DRUGS (1)
  1. HUMIRA [Suspect]
     Indication: PSORIASIS
     Dates: start: 201104, end: 20130731

REACTIONS (2)
  - Transaminases increased [Not Recovered/Not Resolved]
  - Leukopenia [Not Recovered/Not Resolved]
